FAERS Safety Report 16479541 (Version 3)
Quarter: 2020Q1

REPORT INFORMATION
  Report Type: Spontaneous
  Country: US (occurrence: US)
  Receive Date: 20190626
  Receipt Date: 20200327
  Transmission Date: 20200409
  Serious: No
  Sender: FDA-Public Use
  Company Number: US-CELGENEUS-USA-20190409903

PATIENT
  Sex: Female
  Weight: 66 kg

DRUGS (2)
  1. REVLIMID [Suspect]
     Active Substance: LENALIDOMIDE
     Indication: PLASMA CELL MYELOMA
     Dosage: 15 MILLIGRAM
     Route: 048
     Dates: start: 20190108
  2. DEXAMETHASONE. [Concomitant]
     Active Substance: DEXAMETHASONE
     Indication: PRODUCT USED FOR UNKNOWN INDICATION
     Route: 065

REACTIONS (4)
  - Weight decreased [Recovered/Resolved]
  - Skin hyperpigmentation [Not Recovered/Not Resolved]
  - Dysgeusia [Not Recovered/Not Resolved]
  - Skin discolouration [Unknown]

NARRATIVE: CASE EVENT DATE: 2019
